FAERS Safety Report 17939740 (Version 1)
Quarter: 2020Q2

REPORT INFORMATION
  Report Type: Spontaneous
  Country: DE (occurrence: DE)
  Receive Date: 20200624
  Receipt Date: 20200624
  Transmission Date: 20200714
  Serious: Yes (Hospitalization)
  Sender: FDA-Public Use
  Company Number: DE-MYLANLABS-2020M1057441

PATIENT
  Age: 89 Year
  Sex: Female

DRUGS (10)
  1. LORAZEPAM. [Concomitant]
     Active Substance: LORAZEPAM
     Dosage: 1 MG, BEI BEDARF
  2. FOLIC ACID. [Concomitant]
     Active Substance: FOLIC ACID
     Dosage: 5 MILLIGRAM, QD (5 MG, 1-0-0-0)
     Route: 048
  3. ABSTRAL [Concomitant]
     Active Substance: FENTANYL CITRATE
     Dosage: 0.2 MG, BEI BEDARF
     Route: 048
  4. LAXOBERAL [Concomitant]
     Active Substance: SODIUM PICOSULFATE
     Dosage: NK MG, 10-0-0-0, TROPFEN
     Route: 048
  5. ZOLEDRONIC ACID [Suspect]
     Active Substance: ZOLEDRONIC ACID
     Indication: PRODUCT USED FOR UNKNOWN INDICATION
     Dosage: NK MG
  6. OXYCODON [Concomitant]
     Active Substance: OXYCODONE
     Dosage: 10 MILLIGRAM, BID (10 MG, 1-0-0-1)
     Route: 048
  7. LETROZOLE. [Suspect]
     Active Substance: LETROZOLE
     Indication: PRODUCT USED FOR UNKNOWN INDICATION
     Dosage: 2.5 MILLIGRAM, QD (2.5 MG, 1-0-0-0)
     Route: 048
  8. METAMIZOL                          /06276701/ [Concomitant]
     Active Substance: METAMIZOLE
     Dosage: 500 MILLIGRAM, QID (500 MG, 1-1-1-1 )
     Route: 048
  9. ONDANSETRON [Concomitant]
     Active Substance: ONDANSETRON
     Dosage: 8 MG, BEI BEDARF
     Route: 060
  10. PANTOPRAZOL                        /01263201/ [Concomitant]
     Active Substance: PANTOPRAZOLE
     Dosage: 40 MILLIGRAM, QD (40 MG, 1-0-0-0)
     Route: 048

REACTIONS (4)
  - Inflammation [Unknown]
  - Electrolyte imbalance [Unknown]
  - Anaemia [Unknown]
  - Pyrexia [Unknown]
